FAERS Safety Report 24188138 (Version 4)
Quarter: 2024Q4

REPORT INFORMATION
  Report Type: Spontaneous
  Country: AT (occurrence: AT)
  Receive Date: 20240808
  Receipt Date: 20241005
  Transmission Date: 20250115
  Serious: Yes (Death, Hospitalization)
  Sender: JOHNSON AND JOHNSON
  Company Number: AT-JNJFOC-20240813575

PATIENT
  Age: 67 Year
  Sex: Male
  Weight: 63 kg

DRUGS (18)
  1. TALVEY [Suspect]
     Active Substance: TALQUETAMAB-TGVS
     Indication: Plasma cell myeloma
     Route: 058
     Dates: start: 20240228, end: 20240621
  2. BISOPROLOL FUMARATE [Concomitant]
     Active Substance: BISOPROLOL FUMARATE
  3. TRAZODONE HYDROCHLORIDE [Concomitant]
     Active Substance: TRAZODONE HYDROCHLORIDE
  4. BUTYLSCOPOLAMINE BROMIDE [Concomitant]
     Active Substance: BUTYLSCOPOLAMINE BROMIDE
  5. SIMETHICONE (DIMETHICONE) [Concomitant]
     Active Substance: DIMETHICONE
  6. LASIX [Concomitant]
     Active Substance: FUROSEMIDE
  7. SULFAMETROLE\TRIMETHOPRIM [Concomitant]
     Active Substance: SULFAMETROLE\TRIMETHOPRIM
  8. FAMVIR [Concomitant]
     Active Substance: FAMCICLOVIR
  9. POSACONAZOLE [Concomitant]
     Active Substance: POSACONAZOLE
  10. PRAM [OMEPRAZOLE] [Concomitant]
  11. LEVOFLOXACIN [Concomitant]
     Active Substance: LEVOFLOXACIN
  12. LENDORM [Concomitant]
     Active Substance: BROTIZOLAM
  13. IVIGLOB EX [Concomitant]
     Active Substance: HUMAN IMMUNOGLOBULIN G
  14. PANTOPRAZOLE SODIUM [Concomitant]
     Active Substance: PANTOPRAZOLE SODIUM
  15. UROSIN [ALLOPURINOL] [Concomitant]
  16. METHYLPREDNISOLONE [Concomitant]
     Active Substance: METHYLPREDNISOLONE
     Dates: start: 20240528
  17. NEBIDO [TESTOSTERONE] [Concomitant]
     Dosage: 1000MG/4ML
     Dates: start: 20240213
  18. SIMETHICONE (DIMETHICONE) [Concomitant]
     Active Substance: DIMETHICONE
     Dates: start: 20240222

REACTIONS (1)
  - Ascites [Fatal]
